FAERS Safety Report 15333149 (Version 8)
Quarter: 2018Q4

REPORT INFORMATION
  Report Type: Report from Study
  Country: None (occurrence: BE)
  Receive Date: 20180830
  Receipt Date: 20181025
  Transmission Date: 20190204
  Serious: Yes (Death, Hospitalization)
  Sender: FDA-Public Use
  Company Number: BE-ABBVIE-18S-013-2467456-00

PATIENT
  Sex: Male

DRUGS (3)
  1. DUODOPA [Suspect]
     Active Substance: CARBIDOPA\LEVODOPA
     Indication: PARKINSON^S DISEASE
     Dosage: MD= 5.5ML; CD= 2.2ML/HR DURING 16HRS; ED= 1.5ML
     Route: 050
     Dates: start: 20141215, end: 20150106
  2. DUODOPA [Suspect]
     Active Substance: CARBIDOPA\LEVODOPA
     Dosage: DOSES CONTINUOUSLY MONITORED AND ADAPTED
     Route: 050
     Dates: start: 20150106, end: 20171207
  3. DUODOPA [Suspect]
     Active Substance: CARBIDOPA\LEVODOPA
     Dosage: MD= 5.5ML; CD= BETWEEN 2.9 AND 5ML/HR DURING 16HRS; ED= FROM 2.8 TO 5ML
     Route: 050
     Dates: start: 20171207

REACTIONS (5)
  - General physical health deterioration [Unknown]
  - Death [Fatal]
  - Gastrointestinal necrosis [Recovering/Resolving]
  - Volvulus [Recovering/Resolving]
  - Feeling abnormal [Unknown]
